FAERS Safety Report 21706621 (Version 1)
Quarter: 2022Q4

REPORT INFORMATION
  Report Type: Spontaneous
  Country: JP (occurrence: None)
  Receive Date: 20221209
  Receipt Date: 20221209
  Transmission Date: 20230112
  Serious: Yes (Hospitalization)
  Sender: FDA-Public Use
  Company Number: 2022A398525

PATIENT
  Age: 52 Year
  Sex: Female
  Weight: 46 kg

DRUGS (6)
  1. TAGRISSO [Suspect]
     Active Substance: OSIMERTINIB
     Indication: Non-small cell lung cancer
     Route: 048
     Dates: start: 20220727, end: 20220808
  2. TAGRISSO [Suspect]
     Active Substance: OSIMERTINIB
     Indication: Non-small cell lung cancer
     Dosage: AFTER BREAKFAST
     Route: 048
     Dates: start: 20220825, end: 2022
  3. TAGRISSO [Suspect]
     Active Substance: OSIMERTINIB
     Indication: Non-small cell lung cancer
     Dosage: AFTER BREAKFAST
     Route: 048
     Dates: start: 20221026
  4. ESZOPICLONE [Concomitant]
     Active Substance: ESZOPICLONE
     Dosage: BEFORE BEDTIME
     Route: 048
  5. OXINORM [Concomitant]
     Indication: Pain
     Dosage: AS REQUIRED, AT THE TIME OF PAIN1.0DF UNKNOWN
     Route: 048
  6. METOCLOPRAMIDE [Concomitant]
     Active Substance: METOCLOPRAMIDE
     Dosage: AS REQUIRED, WHEN OXINORM (OXYCODONE HYDROCHLORIDE HYDRATE) WAS TAKEN1.0DF UNKNOWN
     Route: 048

REACTIONS (2)
  - Colitis ulcerative [Not Recovered/Not Resolved]
  - Eczema infected [Unknown]

NARRATIVE: CASE EVENT DATE: 20220808
